FAERS Safety Report 5187782-9 (Version None)
Quarter: 2006Q4

REPORT INFORMATION
  Report Type: 
  Country: None (occurrence: None)
  Receive Date: 20061221
  Receipt Date: 20061101
  Transmission Date: 20070319
  Serious: Yes (Hospitalization)
  Sender: FDA-Public Use
  Company Number: PHEH2006US13686

PATIENT
  Age: 14 Year
  Sex: Female
  Weight: 42.7 kg

DRUGS (2)
  1. EXJADE [Suspect]
     Indication: IRON OVERLOAD
     Dosage: 1000 MG, QD
     Route: 048
     Dates: start: 20060501
  2. MOTRIN [Concomitant]
     Indication: PAIN
     Dosage: 400 MG, PRN
     Route: 048
     Dates: start: 20061022, end: 20061028

REACTIONS (8)
  - ACUTE PRERENAL FAILURE [None]
  - BLOOD ALBUMIN DECREASED [None]
  - BLOOD CREATININE INCREASED [None]
  - BLOOD URINE PRESENT [None]
  - DEHYDRATION [None]
  - HAEMOGLOBIN DECREASED [None]
  - PYREXIA [None]
  - URINE OUTPUT DECREASED [None]
